FAERS Safety Report 13194967 (Version 2)
Quarter: 2017Q1

REPORT INFORMATION
  Report Type: Report from Study
  Country: US (occurrence: US)
  Receive Date: 20170207
  Receipt Date: 20170221
  Transmission Date: 20170428
  Serious: Yes (Hospitalization)
  Sender: FDA-Public Use
  Company Number: US-GILEAD-2017-0252025

PATIENT
  Age: 58 Year
  Sex: Male

DRUGS (5)
  1. AMBIEN [Concomitant]
     Active Substance: ZOLPIDEM TARTRATE
  2. DAKLINZA [Concomitant]
     Active Substance: DACLATASVIR
  3. LACTULOSE. [Concomitant]
     Active Substance: LACTULOSE
  4. SOFOSBUVIR [Suspect]
     Active Substance: SOFOSBUVIR
     Indication: HEPATITIS C
     Dosage: 400 MG, UNK
     Route: 048
     Dates: start: 201612
  5. RIBASPHERE [Concomitant]
     Active Substance: RIBAVIRIN

REACTIONS (5)
  - Drug dose omission [Recovered/Resolved]
  - Confusional state [Unknown]
  - Drug dose omission [Recovered/Resolved]
  - Overdose [Recovered/Resolved]
  - Nausea [Not Recovered/Not Resolved]

NARRATIVE: CASE EVENT DATE: 201701
